FAERS Safety Report 5803949-8 (Version None)
Quarter: 2008Q4

REPORT INFORMATION
  Report Type: 
  Country: None (occurrence: None)
  Receive Date: 20080703
  Receipt Date: 20080623
  Transmission Date: 20090506
  Serious: Yes (Death)
  Sender: FDA-Public Use
  Company Number: GXBR2008US01379

PATIENT
  Age: 44 Year
  Sex: Female

DRUGS (3)
  1. MIRTAZAPINE [Suspect]
  2. TEMAZEPAM [Suspect]
  3. ZOLPIDEM TARTRATE [Suspect]

REACTIONS (1)
  - DRUG TOXICITY [None]
